FAERS Safety Report 15415606 (Version 1)
Quarter: 2018Q3

REPORT INFORMATION
  Report Type: Report from Study
  Country: US (occurrence: US)
  Receive Date: 20180922
  Receipt Date: 20180922
  Transmission Date: 20181010
  Serious: No
  Sender: FDA-Public Use
  Company Number: PHHY2018US104472

PATIENT
  Age: 47 Year
  Sex: Female

DRUGS (2)
  1. AFINITOR [Suspect]
     Active Substance: EVEROLIMUS
     Indication: ANGIOMYOLIPOMA
     Dosage: 5 MG, QD
     Route: 051
     Dates: start: 20180505
  2. AFINITOR [Suspect]
     Active Substance: EVEROLIMUS
     Dosage: 5 MG, EVERY OTHER DAY
     Route: 051

REACTIONS (6)
  - Incorrect route of drug administration [Unknown]
  - Menstruation irregular [Unknown]
  - Pyrexia [Unknown]
  - Blood triglycerides increased [Unknown]
  - Alveolar osteitis [Recovered/Resolved]
  - Blood glucose increased [Unknown]

NARRATIVE: CASE EVENT DATE: 20180512
